FAERS Safety Report 22173984 (Version 2)
Quarter: 2023Q2

REPORT INFORMATION
  Report Type: Spontaneous
  Country: ES (occurrence: ES)
  Receive Date: 20230404
  Receipt Date: 20230506
  Transmission Date: 20230722
  Serious: Yes (Other)
  Sender: FDA-Public Use
  Company Number: ES-BAYER-2023A044340

PATIENT
  Age: 79 Year
  Sex: Male
  Weight: 80 kg

DRUGS (5)
  1. XARELTO [Suspect]
     Active Substance: RIVAROXABAN
     Indication: Product used for unknown indication
     Dosage: 20 MG
     Route: 048
     Dates: start: 202106, end: 20220509
  2. HIBOR [Concomitant]
     Dosage: 3500 IU (3500 IU/0.2 ML)
     Route: 058
     Dates: start: 20220512, end: 20220512
  3. HIBOR [Concomitant]
     Dosage: 3500 IU (3500 IU/0.2 ML)
     Route: 058
     Dates: start: 20220513, end: 20220513
  4. HIBOR [Concomitant]
     Dosage: 3500 IU (3500 IU/0.2 ML)
     Route: 058
     Dates: start: 20220514, end: 20220514
  5. HIBOR [Concomitant]
     Dosage: 3500 IU (3500 IU/0.2 ML)
     Dates: start: 20220515, end: 20220515

REACTIONS (2)
  - Prostatic operation [Unknown]
  - Thrombotic stroke [Unknown]

NARRATIVE: CASE EVENT DATE: 20220511
